FAERS Safety Report 13077935 (Version 14)
Quarter: 2019Q2

REPORT INFORMATION
  Report Type: Report from Study
  Country: JP (occurrence: JP)
  Receive Date: 20170102
  Receipt Date: 20190403
  Transmission Date: 20190711
  Serious: Yes (Hospitalization, Other)
  Sender: FDA-Public Use
  Company Number: JP-ROCHE-1872772

PATIENT
  Age: 46 Year
  Sex: Male
  Weight: 74 kg

DRUGS (62)
  1. BESOFTEN [Concomitant]
     Active Substance: PENTOSAN POLYSULFATE SODIUM
     Indication: DRY SKIN
     Route: 065
     Dates: start: 20170405
  2. ALLYLISOPROPYLACETYLUREA [Concomitant]
     Active Substance: APRONALIDE
     Route: 065
     Dates: start: 20170329, end: 20170330
  3. ALLYLISOPROPYLACETYLUREA [Concomitant]
     Active Substance: APRONALIDE
     Route: 065
     Dates: start: 20170615, end: 20170615
  4. ANHYDROUS CAFFEINE [Concomitant]
     Active Substance: CAFFEINE
     Route: 065
     Dates: start: 20170331, end: 20170401
  5. AMOXICILLIN. [Concomitant]
     Active Substance: AMOXICILLIN
     Indication: RHINITIS
     Route: 065
     Dates: start: 20170329, end: 20170405
  6. HIRUDOID OINTMENT [Concomitant]
     Indication: DRY SKIN
     Route: 065
     Dates: start: 20170405
  7. VILANTEROL TRIFENATATE [Concomitant]
     Active Substance: VILANTEROL TRIFENATATE
     Indication: ASTHMA
     Route: 065
     Dates: start: 20190222
  8. ROPION [Concomitant]
     Active Substance: FLURBIPROFEN AXETIL
     Indication: BRONCHITIS BACTERIAL
     Route: 065
     Dates: start: 20190222, end: 20190222
  9. MIYA-BM [Concomitant]
     Active Substance: CLOSTRIDIUM BUTYRICUM SPORES STRAIN M-55
     Indication: GASTROENTERITIS
     Route: 065
     Dates: start: 20190318
  10. ARGAMATE [Concomitant]
     Active Substance: CALCIUM POLYSTYRENE SULFONATE
     Route: 065
     Dates: start: 20170306, end: 20170308
  11. IBUPROFEN. [Concomitant]
     Active Substance: IBUPROFEN
     Route: 065
     Dates: start: 20170329, end: 20170330
  12. PROMETHAZINE METHYLENE DISALICYLATE [Concomitant]
     Active Substance: PROMETHAZINE METHYLENEDISALICYLATE
     Indication: RHINITIS
     Route: 065
     Dates: start: 20170331, end: 20170401
  13. GLYCERIN. [Concomitant]
     Active Substance: GLYCERIN
     Indication: STOMATITIS
     Route: 065
     Dates: start: 20181114, end: 20181127
  14. BESOFTEN [Concomitant]
     Active Substance: PENTOSAN POLYSULFATE SODIUM
     Indication: PRURITUS
     Route: 065
     Dates: start: 20190306, end: 20190307
  15. CEFMETAZOLE SODIUM [Concomitant]
     Active Substance: CEFMETAZOLE SODIUM
     Indication: GASTROENTERITIS
     Route: 042
     Dates: start: 20190318, end: 20190320
  16. ALENDRONATE [Concomitant]
     Active Substance: ALENDRONATE SODIUM
     Indication: OSTEOPOROSIS
     Route: 065
     Dates: start: 20170101, end: 20170710
  17. DIPHENYLPYRALINE HYDROCHLORIDE. [Concomitant]
     Active Substance: DIPHENYLPYRALINE HYDROCHLORIDE
     Indication: RHINITIS
     Route: 065
     Dates: start: 20170331, end: 20170401
  18. GUAIFENESIN. [Concomitant]
     Active Substance: GUAIFENESIN
     Indication: RHINITIS
     Route: 065
     Dates: start: 20170331, end: 20170401
  19. SENNOSIDE [Concomitant]
     Active Substance: SENNOSIDES
     Indication: CONSTIPATION
     Route: 065
     Dates: start: 20190310, end: 20190311
  20. ALENDRONATE [Concomitant]
     Active Substance: ALENDRONATE SODIUM
     Indication: OSTEOPOROSIS
     Route: 065
     Dates: start: 20190324
  21. LANSOPRAZOLE. [Concomitant]
     Active Substance: LANSOPRAZOLE
     Indication: GASTRITIS
     Route: 065
     Dates: start: 20161230, end: 20170710
  22. BESOFTEN [Concomitant]
     Active Substance: PENTOSAN POLYSULFATE SODIUM
     Indication: PRURITUS
     Route: 065
     Dates: start: 20170104, end: 20170117
  23. BAKTAR [Concomitant]
     Active Substance: SULFAMETHOXAZOLE\TRIMETHOPRIM
     Indication: INFECTION
     Route: 065
     Dates: start: 20170105, end: 20170303
  24. ARGAMATE [Concomitant]
     Active Substance: CALCIUM POLYSTYRENE SULFONATE
     Indication: HYPERKALAEMIA
     Route: 065
     Dates: start: 20170125, end: 20170201
  25. IBUPROFEN. [Concomitant]
     Active Substance: IBUPROFEN
     Route: 065
     Dates: start: 20170319, end: 20170319
  26. ANHYDROUS CAFFEINE [Concomitant]
     Active Substance: CAFFEINE
     Indication: RHINITIS
     Route: 065
     Dates: start: 20170319, end: 20170319
  27. DIHYDROCODEINE PHOSPHATE [Concomitant]
     Active Substance: DIHYDROCODEINE PHOSPHATE
     Indication: RHINITIS
     Route: 065
     Dates: start: 20170331, end: 20170401
  28. POLARAMINE [Concomitant]
     Active Substance: DEXCHLORPHENIRAMINE MALEATE
     Indication: PRURITUS
     Route: 065
     Dates: start: 20190226, end: 20190301
  29. CALONAL [Concomitant]
     Active Substance: ACETAMINOPHEN
     Indication: GASTROENTERITIS
     Route: 065
     Dates: start: 20190318, end: 20190318
  30. RHYTHMY [Concomitant]
     Active Substance: RILMAZAFONE HYDROCHLORIDE
     Indication: INSOMNIA
     Route: 065
     Dates: start: 20161227, end: 20170115
  31. IBUPROFEN. [Concomitant]
     Active Substance: IBUPROFEN
     Indication: HEADACHE
     Route: 065
     Dates: start: 20170224, end: 20170226
  32. ANHYDROUS CAFFEINE [Concomitant]
     Active Substance: CAFFEINE
     Route: 065
     Dates: start: 20170329, end: 20170330
  33. AZ COMBINATION [Concomitant]
     Indication: STOMATITIS
     Route: 065
     Dates: start: 20181114, end: 20181127
  34. TAMIFLU [Concomitant]
     Active Substance: OSELTAMIVIR PHOSPHATE
     Indication: INFLUENZA
     Route: 065
     Dates: start: 20190115, end: 20190119
  35. ENCRUSE [Concomitant]
     Indication: CHRONIC OBSTRUCTIVE PULMONARY DISEASE
     Route: 065
     Dates: start: 20190222
  36. BOSMIN [Concomitant]
     Active Substance: EPINEPHRINE
     Indication: ASTHMA
     Route: 065
     Dates: start: 20190222, end: 20190222
  37. CEFAZOLIN SODIUM. [Concomitant]
     Active Substance: CEFAZOLIN SODIUM
     Indication: BRONCHITIS BACTERIAL
     Route: 065
     Dates: start: 20190225, end: 20190226
  38. LANSOPRAZOLE. [Concomitant]
     Active Substance: LANSOPRAZOLE
     Route: 065
     Dates: start: 20181017
  39. LACTEC [Concomitant]
     Active Substance: CALCIUM CHLORIDE ANHYDROUS\POTASSIUM CHLORIDE\SODIUM CHLORIDE\SODIUM LACTATE
     Indication: RENAL IMPAIRMENT
     Route: 065
     Dates: start: 20161229, end: 20161229
  40. ARGAMATE [Concomitant]
     Active Substance: CALCIUM POLYSTYRENE SULFONATE
     Route: 065
     Dates: start: 20170329, end: 20170405
  41. IBUPROFEN. [Concomitant]
     Active Substance: IBUPROFEN
     Route: 065
     Dates: start: 20170615, end: 20170615
  42. ANHYDROUS CAFFEINE [Concomitant]
     Active Substance: CAFFEINE
     Route: 065
     Dates: start: 20170615, end: 20170615
  43. BELLADONNA [Concomitant]
     Active Substance: ATROPA BELLADONNA\HOMEOPATHICS
     Indication: RHINITIS
     Route: 065
     Dates: start: 20170331, end: 20170401
  44. FORMOTEROL FUMARATE DIHYDRATE [Concomitant]
     Active Substance: FORMOTEROL FUMARATE DIHYDRATE
     Indication: ASTHMA
     Route: 065
     Dates: start: 20181030
  45. TAZOPIPE [Concomitant]
     Active Substance: PIPERACILLIN SODIUM\TAZOBACTAM SODIUM
     Indication: BRONCHITIS BACTERIAL
     Route: 065
     Dates: start: 20190222, end: 20190225
  46. LOXOPROFEN [Concomitant]
     Active Substance: LOXOPROFEN
     Indication: BRONCHITIS BACTERIAL
     Route: 065
     Dates: start: 20190221, end: 20190221
  47. METOCLOPRAMIDE HYDROCHLORIDE. [Concomitant]
     Active Substance: METOCLOPRAMIDE HYDROCHLORIDE
     Indication: GASTROENTERITIS
     Route: 065
     Dates: start: 20190318, end: 20190318
  48. LEVOFLOXACIN. [Concomitant]
     Active Substance: LEVOFLOXACIN
     Indication: GASTROENTERITIS
     Route: 065
     Dates: start: 20190321, end: 20190325
  49. ATEZOLIZUMAB. [Suspect]
     Active Substance: ATEZOLIZUMAB
     Indication: NON-SMALL CELL LUNG CANCER STAGE IV
     Dosage: MOST RECENT DOSE OF ATEZOLIZUMAB WAS ADMINISTERED ON 12/DEC/2016 AT 10:58 (CYCLE 1 DAY 1).?ON 10/APR
     Route: 042
     Dates: start: 20161212
  50. TOWATHIEM [Concomitant]
     Active Substance: ACETAMINOPHEN\CAFFEINE\PROMETHAZINE\SALICYLAMIDE
     Indication: NASOPHARYNGITIS
     Route: 065
     Dates: start: 20161208, end: 20161223
  51. ALLYLISOPROPYLACETYLUREA [Concomitant]
     Active Substance: APRONALIDE
     Indication: HEADACHE
     Route: 065
     Dates: start: 20170224, end: 20170226
  52. ALLYLISOPROPYLACETYLUREA [Concomitant]
     Active Substance: APRONALIDE
     Route: 065
     Dates: start: 20170319, end: 20170319
  53. XYZAL [Concomitant]
     Active Substance: LEVOCETIRIZINE DIHYDROCHLORIDE
     Indication: RASH
     Route: 065
     Dates: start: 20170303, end: 20170317
  54. SALICYLAMIDE [Concomitant]
     Active Substance: SALICYLAMIDE
     Indication: RHINITIS
     Route: 065
     Dates: start: 20170331, end: 20170401
  55. DL-METHYLEPHEDRINE HYDROCHLORIDE [Concomitant]
     Active Substance: METHYLEPHEDRINE HYDROCHLORIDE, (+/-)-
     Indication: RHINITIS
     Route: 065
     Dates: start: 20170331, end: 20170401
  56. ISOTONIC SODIUM CHLORIDE SOLUTION KIT H [Concomitant]
     Indication: GASTROENTERITIS
     Route: 065
     Dates: start: 20190318, end: 20190319
  57. VENETLIN [Concomitant]
     Active Substance: ALBUTEROL SULFATE
     Route: 065
     Dates: start: 20190223, end: 20190307
  58. ARGAMATE [Concomitant]
     Active Substance: CALCIUM POLYSTYRENE SULFONATE
     Route: 065
     Dates: start: 20170428
  59. ANHYDROUS CAFFEINE [Concomitant]
     Active Substance: CAFFEINE
     Indication: HEADACHE
     Route: 065
     Dates: start: 20170224, end: 20170226
  60. ISOTONIC SODIUM CHLORIDE SOLUTION KIT H [Concomitant]
     Indication: RENAL IMPAIRMENT
     Route: 065
     Dates: start: 20181030, end: 20181031
  61. MIYA-BM [Concomitant]
     Active Substance: CLOSTRIDIUM BUTYRICUM SPORES STRAIN M-55
     Indication: DIARRHOEA
     Route: 065
     Dates: start: 20190226, end: 20190227
  62. UNASYN [Concomitant]
     Active Substance: AMPICILLIN SODIUM\SULBACTAM SODIUM
     Indication: BRONCHITIS BACTERIAL
     Route: 042
     Dates: start: 20190227, end: 20190228

REACTIONS (2)
  - Immune system disorder [Recovered/Resolved]
  - Immune system disorder [Recovering/Resolving]

NARRATIVE: CASE EVENT DATE: 20161222
